FAERS Safety Report 16178999 (Version 3)
Quarter: 2019Q2

REPORT INFORMATION
  Report Type: Spontaneous
  Country: NL (occurrence: NL)
  Receive Date: 20190410
  Receipt Date: 20190415
  Transmission Date: 20190711
  Serious: Yes (Other)
  Sender: FDA-Public Use
  Company Number: NL-TEVA-2019-NL-1037277

PATIENT
  Age: 71 Year
  Sex: Male

DRUGS (1)
  1. CINQAERO [Suspect]
     Active Substance: RESLIZUMAB
     Route: 042
     Dates: start: 20180605

REACTIONS (1)
  - Prostatic specific antigen increased [Unknown]
